FAERS Safety Report 6536954-7 (Version None)
Quarter: 2010Q1

REPORT INFORMATION
  Report Type: 
  Country: None (occurrence: None)
  Receive Date: 20100105
  Receipt Date: 20091228
  Transmission Date: 20100710
  Serious: Yes (Death, Other)
  Sender: FDA-Public Use
  Company Number: 2009US004541

PATIENT
  Age: 16 Year
  Sex: Female

DRUGS (3)
  1. PROGRAF [Suspect]
     Indication: PANCREAS TRANSPLANT
     Dosage: 0.15 MG/KG,
  2. PREDNISONE [Concomitant]
  3. MYCOPHENOLATE SODIUM (MYCOPHENOLATE SODIUM) [Concomitant]

REACTIONS (7)
  - CYTOMEGALOVIRUS INFECTION [None]
  - PANCREATITIS [None]
  - PNEUMONIA [None]
  - POST PROCEDURAL COMPLICATION [None]
  - SEPTIC SHOCK [None]
  - URINARY TRACT INFECTION [None]
  - VESICAL FISTULA [None]
